FAERS Safety Report 21287501 (Version 2)
Quarter: 2025Q4

REPORT INFORMATION
  Report Type: Spontaneous
  Country: AU (occurrence: AU)
  Receive Date: 20220902
  Receipt Date: 20251208
  Transmission Date: 20260117
  Serious: Yes (Death)
  Sender: MYLAN
  Company Number: AU-MYLANLABS-2022M1090675

PATIENT
  Age: 15 Year
  Sex: Male

DRUGS (2)
  1. EPIPEN [Suspect]
     Active Substance: EPINEPHRINE
     Indication: Anaphylactic reaction
     Dosage: UNK
  2. VENTOLIN [Suspect]
     Active Substance: ALBUTEROL SULFATE
     Indication: Anaphylactic reaction
     Dosage: UNK

REACTIONS (3)
  - Seizure [Fatal]
  - Brain injury [Fatal]
  - Cardiac arrest [Fatal]
